FAERS Safety Report 17622997 (Version 4)
Quarter: 2020Q3

REPORT INFORMATION
  Report Type: Spontaneous
  Country: US (occurrence: US)
  Receive Date: 20200403
  Receipt Date: 20200831
  Transmission Date: 20201102
  Serious: Yes (Hospitalization, Other)
  Sender: FDA-Public Use
  Company Number: US-VERTEX PHARMACEUTICALS-2020-007736

PATIENT
  Age: 7 Year
  Sex: Male

DRUGS (3)
  1. CAYSTON [Concomitant]
     Active Substance: AZTREONAM
     Dosage: UNK
  2. SYMDEKO [Suspect]
     Active Substance: IVACAFTOR\TEZACAFTOR
     Indication: CYSTIC FIBROSIS
     Dosage: 50MG/ 75MG TABLETS, TRADITIONAL DOSING
     Route: 048
     Dates: start: 20200205, end: 20200227
  3. URSODIOL. [Concomitant]
     Active Substance: URSODIOL

REACTIONS (4)
  - Lung transplant [Unknown]
  - Abdominal distension [Recovered/Resolved]
  - Liver transplant [Unknown]
  - Peripheral swelling [Recovered/Resolved]

NARRATIVE: CASE EVENT DATE: 202002
